FAERS Safety Report 20178099 (Version 1)
Quarter: 2021Q4

REPORT INFORMATION
  Report Type: Spontaneous
  Country: DE (occurrence: DE)
  Receive Date: 20211213
  Receipt Date: 20211213
  Transmission Date: 20220303
  Serious: Yes (Congenital Anomaly, Other)
  Sender: FDA-Public Use
  Company Number: DE-EMBRYOTOX-202006988

PATIENT
  Age: 1 Day
  Sex: Male
  Weight: 2.62 kg

DRUGS (3)
  1. FEXOFENADINE HYDROCHLORIDE [Suspect]
     Active Substance: FEXOFENADINE HYDROCHLORIDE
     Indication: Urticaria
     Dosage: 180 [MG/D ]
     Route: 064
     Dates: start: 20200524, end: 20210217
  2. DINOPROSTONE [Concomitant]
     Active Substance: DINOPROSTONE
     Indication: Labour induction
     Dosage: UNK
     Route: 064
     Dates: start: 20210217, end: 20210217
  3. LORATADINE [Concomitant]
     Active Substance: LORATADINE
     Indication: Urticaria
     Dosage: UNK
     Route: 064

REACTIONS (6)
  - Small for dates baby [Unknown]
  - Respiratory disorder neonatal [Recovered/Resolved]
  - Acoustic stimulation tests abnormal [Unknown]
  - Cataract congenital [Unknown]
  - Developmental delay [Unknown]
  - Foetal exposure during pregnancy [Unknown]

NARRATIVE: CASE EVENT DATE: 20210217
